FAERS Safety Report 4752129-6 (Version None)
Quarter: 2005Q3

REPORT INFORMATION
  Report Type: 
  Country: None (occurrence: None)
  Receive Date: 20050824
  Receipt Date: 20050824
  Transmission Date: 20060218
  Serious: Yes (Other)
  Sender: FDA-Public Use
  Company Number: None

PATIENT
  Age: 44 Year
  Sex: Male
  Weight: 53.978 kg

DRUGS (3)
  1. ZIPRASIDONE 20MG PFIZER [Suspect]
     Indication: AFFECT LABILITY
     Dosage: 80MG  TWICE DAILY PO
     Route: 048
     Dates: start: 20040427, end: 20050823
  2. DIVALPROEX SODIUM [Concomitant]
  3. ATORVASTATIN CALCIUM [Concomitant]

REACTIONS (3)
  - BLOOD GLUCOSE INCREASED [None]
  - GLYCOSYLATED HAEMOGLOBIN INCREASED [None]
  - WEIGHT INCREASED [None]
